FAERS Safety Report 14535077 (Version 1)
Quarter: 2018Q1

REPORT INFORMATION
  Report Type: Report from Study
  Country: CA (occurrence: CA)
  Receive Date: 20180215
  Receipt Date: 20180215
  Transmission Date: 20180509
  Serious: Yes (Hospitalization)
  Sender: FDA-Public Use
  Company Number: CA-JNJFOC-20180213521

PATIENT
  Age: 26 Year
  Sex: Female
  Weight: 43.5 kg

DRUGS (1)
  1. REMICADE [Suspect]
     Active Substance: INFLIXIMAB
     Indication: CROHN^S DISEASE
     Route: 042
     Dates: start: 20170919

REACTIONS (3)
  - Scar excision [Unknown]
  - Crohn^s disease [Unknown]
  - Intestinal resection [Unknown]

NARRATIVE: CASE EVENT DATE: 20180130
